FAERS Safety Report 8013214-9 (Version None)
Quarter: 2011Q4

REPORT INFORMATION
  Report Type: 
  Country: None (occurrence: None)
  Receive Date: 20111229
  Receipt Date: 20111229
  Transmission Date: 20120403
  Serious: Yes (Other)
  Sender: FDA-Public Use
  Company Number: None

PATIENT
  Sex: Female
  Weight: 83.007 kg

DRUGS (3)
  1. AMBIEN [Concomitant]
     Route: 048
  2. AMBIEN [Concomitant]
     Route: 048
  3. VIIBRYD [Suspect]
     Indication: FIBROMYALGIA
     Dosage: 40MG
     Route: 048
     Dates: start: 20111012, end: 20111226

REACTIONS (4)
  - INSOMNIA [None]
  - FEELING ABNORMAL [None]
  - SUICIDAL IDEATION [None]
  - DEPRESSION [None]
